FAERS Safety Report 14165238 (Version 1)
Quarter: 2017Q4

REPORT INFORMATION
  Report Type: Spontaneous
  Country: HR (occurrence: HR)
  Receive Date: 20171107
  Receipt Date: 20171107
  Transmission Date: 20180321
  Serious: Yes (Other)
  Sender: FDA-Public Use
  Company Number: PHHY2017HR161887

PATIENT

DRUGS (1)
  1. PACLITAXEL. [Suspect]
     Active Substance: PACLITAXEL
     Indication: METASTASIS
     Dosage: QW, 17 CYCLES
     Route: 065
     Dates: start: 20170523, end: 20170914

REACTIONS (5)
  - Neuropathy peripheral [Recovered/Resolved]
  - Paronychia [Recovered/Resolved]
  - Erythema [Recovered/Resolved]
  - Rash [Recovered/Resolved]
  - Disease progression [Not Recovered/Not Resolved]
